FAERS Safety Report 24191156 (Version 1)
Quarter: 2024Q3

REPORT INFORMATION
  Report Type: Report from Study
  Country: FR (occurrence: FR)
  Receive Date: 20240808
  Receipt Date: 20240808
  Transmission Date: 20241016
  Serious: Yes (Other)
  Sender: MYLAN
  Company Number: FR-TEVA-VS-3221643

PATIENT
  Age: 25 Year
  Weight: 52 kg

DRUGS (2)
  1. TRAMADOL [Suspect]
     Active Substance: TRAMADOL\TRAMADOL HYDROCHLORIDE
     Indication: Somnolence
     Dosage: 600 MILLIGRAM (600MG OF TRAMADOL EXTENDED-RELEASE)
     Route: 065
  2. LORAZEPAM [Suspect]
     Active Substance: LORAZEPAM
     Indication: Product used for unknown indication
     Dosage: 8 MILLIGRAM (2 AMPOULES (8MG)).)
     Route: 065

REACTIONS (4)
  - Drug dependence [Unknown]
  - Pain in extremity [Recovered/Resolved]
  - Injection site pain [Unknown]
  - Euphoric mood [Unknown]
